FAERS Safety Report 15253580 (Version 1)
Quarter: 2018Q3

REPORT INFORMATION
  Report Type: Report from Study
  Country: None (occurrence: SV)
  Receive Date: 20180808
  Receipt Date: 20180808
  Transmission Date: 20181010
  Serious: Yes (Hospitalization, Other)
  Sender: FDA-Public Use
  Company Number: SV-ABBVIE-18K-050-2397201-00

PATIENT
  Age: 50 Year
  Sex: Male
  Weight: 143 kg

DRUGS (1)
  1. HUMIRA [Suspect]
     Active Substance: ADALIMUMAB
     Indication: ANKYLOSING SPONDYLITIS
     Route: 058
     Dates: start: 20090201

REACTIONS (5)
  - Hypoaesthesia [Recovering/Resolving]
  - Arthralgia [Recovering/Resolving]
  - Psoriasis [Recovering/Resolving]
  - Musculoskeletal discomfort [Recovering/Resolving]
  - Stress at work [Recovering/Resolving]

NARRATIVE: CASE EVENT DATE: 20180609
